FAERS Safety Report 15860966 (Version 3)
Quarter: 2025Q1

REPORT INFORMATION
  Report Type: Report from Study
  Country: BR (occurrence: BR)
  Receive Date: 20190124
  Receipt Date: 20250301
  Transmission Date: 20250408
  Serious: Yes (Other)
  Sender: ROCHE
  Company Number: BR-ROCHE-2116242

PATIENT
  Age: 30 Year
  Sex: Female
  Weight: 45.0 kg

DRUGS (3)
  1. MABTHERA [Suspect]
     Active Substance: RITUXIMAB
     Indication: Rheumatoid arthritis
     Route: 042
     Dates: start: 20180423
  2. FLUOXETINE [Concomitant]
     Active Substance: FLUOXETINE HYDROCHLORIDE
  3. LEFLUNOMIDE [Concomitant]
     Active Substance: LEFLUNOMIDE
     Indication: Rheumatoid arthritis

REACTIONS (10)
  - Vomiting [Recovering/Resolving]
  - Dyspnoea [Recovered/Resolved]
  - Oxygen saturation decreased [Recovered/Resolved]
  - Wheezing [Recovered/Resolved]
  - Stridor [Recovered/Resolved]
  - Face oedema [Recovered/Resolved]
  - Joint swelling [Recovered/Resolved]
  - Pruritus [Recovered/Resolved]
  - Urticaria [Recovered/Resolved]
  - Nausea [Unknown]

NARRATIVE: CASE EVENT DATE: 20190118
